FAERS Safety Report 9059748 (Version 1)
Quarter: 2013Q1

REPORT INFORMATION
  Report Type: Spontaneous
  Country: US (occurrence: None)
  Receive Date: 20130206
  Receipt Date: 20130206
  Transmission Date: 20140127
  Serious: Yes (Disabling)
  Sender: FDA-Public Use
  Company Number: None

PATIENT
  Age: 69 Year
  Sex: Male
  Weight: 99.79 kg

DRUGS (2)
  1. SYNVISC-ONE [Suspect]
     Indication: OSTEOARTHRITIS
     Dates: start: 20110216, end: 20120506
  2. SYNVISC-ONE [Suspect]
     Indication: ARTHRALGIA
     Dates: start: 20110216, end: 20120506

REACTIONS (3)
  - Nonspecific reaction [None]
  - Pain [None]
  - Decreased activity [None]
